FAERS Safety Report 13535220 (Version 1)
Quarter: 2017Q2

REPORT INFORMATION
  Report Type: Spontaneous
  Country: US (occurrence: US)
  Receive Date: 20170510
  Receipt Date: 20170510
  Transmission Date: 20170830
  Serious: No
  Sender: FDA-Public Use
  Company Number: None

PATIENT
  Age: 39 Year
  Sex: Female
  Weight: 84.9 kg

DRUGS (1)
  1. AMIKACIN 850MG FRESENIUS [Suspect]
     Active Substance: AMIKACIN
     Indication: ABDOMINAL ABSCESS
     Dosage: 850MG Q24H IV
     Route: 042
     Dates: start: 20161104, end: 20170510

REACTIONS (1)
  - Hypoacusis [None]

NARRATIVE: CASE EVENT DATE: 20170510
